FAERS Safety Report 15508144 (Version 2)
Quarter: 2018Q4

REPORT INFORMATION
  Report Type: Spontaneous
  Country: US (occurrence: US)
  Receive Date: 20181016
  Receipt Date: 20181031
  Transmission Date: 20190205
  Serious: No
  Sender: FDA-Public Use
  Company Number: US-CELGENEUS-USA-20181004636

PATIENT
  Sex: Female

DRUGS (1)
  1. OTEZLA [Suspect]
     Active Substance: APREMILAST
     Indication: PSORIATIC ARTHROPATHY
     Dosage: TITRATION DOSE/STARTER PACK
     Route: 048
     Dates: start: 20180916, end: 20181018

REACTIONS (4)
  - Nausea [Recovered/Resolved]
  - Dizziness [Recovered/Resolved]
  - Diarrhoea [Recovering/Resolving]
  - Headache [Recovered/Resolved]

NARRATIVE: CASE EVENT DATE: 2018
